FAERS Safety Report 6297832-4 (Version None)
Quarter: 2009Q3

REPORT INFORMATION
  Report Type: 
  Country: None (occurrence: None)
  Receive Date: 20090804
  Receipt Date: 20090804
  Transmission Date: 20100115
  Serious: Yes (Hospitalization, Other)
  Sender: FDA-Public Use
  Company Number: None

PATIENT
  Age: 74 Year
  Sex: Male

DRUGS (2)
  1. CIPROFLOXACIN [Suspect]
     Indication: URINARY RETENTION
     Dosage: 500 MG TWICE/DAY, ORAL
     Route: 048
  2. CITALOPRAM HYDROBROMIDE [Suspect]
     Indication: DEPRESSION
     Dosage: 20 MG PER DAY

REACTIONS (13)
  - CHILLS [None]
  - CONFUSIONAL STATE [None]
  - DYSARTHRIA [None]
  - GAIT DISTURBANCE [None]
  - HYPERHIDROSIS [None]
  - HYPERREFLEXIA [None]
  - MUSCLE RIGIDITY [None]
  - MYDRIASIS [None]
  - MYOCLONUS [None]
  - RESTLESSNESS [None]
  - SEROTONIN SYNDROME [None]
  - TACHYCARDIA [None]
  - TREMOR [None]
